FAERS Safety Report 4821915-6 (Version None)
Quarter: 2005Q4

REPORT INFORMATION
  Report Type: 
  Country: None (occurrence: None)
  Receive Date: 20051103
  Receipt Date: 20051019
  Transmission Date: 20060501
  Serious: Yes (Life-Threatening, Hospitalization, Other)
  Sender: FDA-Public Use
  Company Number: MAG-2005-0000392

PATIENT
  Age: 28 Year
  Sex: Male

DRUGS (1)
  1. THEOPHYLLINE [Suspect]
     Indication: DRUG USE FOR UNKNOWN INDICATION
     Dosage: 84 TABLET, SINGLE, ORAL
     Route: 048

REACTIONS (23)
  - ARRHYTHMIA [None]
  - BLOOD CALCIUM DECREASED [None]
  - BLOOD CHLORIDE DECREASED [None]
  - BLOOD PHOSPHORUS DECREASED [None]
  - BLOOD POTASSIUM DECREASED [None]
  - CARDIOVASCULAR DISORDER [None]
  - CENTRAL NERVOUS SYSTEM STIMULATION [None]
  - DEPRESSED LEVEL OF CONSCIOUSNESS [None]
  - DRUG TOXICITY [None]
  - ELECTROLYTE IMBALANCE [None]
  - EXCITABILITY [None]
  - HAEMODIALYSIS [None]
  - HYPERVENTILATION [None]
  - HYPOTENSION [None]
  - HYPOVOLAEMIC SHOCK [None]
  - LOSS OF CONSCIOUSNESS [None]
  - OVERDOSE [None]
  - POLYURIA [None]
  - RESPIRATORY ALKALOSIS [None]
  - SHOCK [None]
  - SUICIDE ATTEMPT [None]
  - TACHYCARDIA [None]
  - VENTRICULAR EXTRASYSTOLES [None]
